FAERS Safety Report 16055756 (Version 2)
Quarter: 2019Q2

REPORT INFORMATION
  Report Type: Spontaneous
  Country: BR (occurrence: BR)
  Receive Date: 20190311
  Receipt Date: 20190404
  Transmission Date: 20190711
  Serious: Yes (Other)
  Sender: FDA-Public Use
  Company Number: BR-ROCHE-2275423

PATIENT
  Age: 67 Year
  Sex: Male

DRUGS (10)
  1. RIBAVIRIN. [Suspect]
     Active Substance: RIBAVIRIN
     Route: 065
     Dates: start: 20131011, end: 20131108
  2. PEG-INTERFERON ALFA 2A [Suspect]
     Active Substance: PEGINTERFERON ALFA-2A
     Indication: HEPATITIS C VIRUS TEST POSITIVE
     Route: 065
     Dates: start: 20130305
  3. DACLATASVIR. [Concomitant]
     Active Substance: DACLATASVIR
     Route: 065
  4. RIBAVIRIN. [Suspect]
     Active Substance: RIBAVIRIN
     Route: 065
     Dates: start: 20130823, end: 20130906
  5. RIBAVIRIN. [Suspect]
     Active Substance: RIBAVIRIN
     Route: 065
     Dates: start: 20131108, end: 20140204
  6. RIBAVIRIN. [Suspect]
     Active Substance: RIBAVIRIN
     Route: 065
     Dates: start: 20130919, end: 20131011
  7. SOFOSBUVIR [Concomitant]
     Active Substance: SOFOSBUVIR
     Route: 065
  8. RIBAVIRIN. [Suspect]
     Active Substance: RIBAVIRIN
     Indication: HEPATITIS C VIRUS TEST POSITIVE
     Route: 065
     Dates: start: 20130305
  9. RIBAVIRIN. [Suspect]
     Active Substance: RIBAVIRIN
     Route: 065
  10. PEG-INTERFERON ALFA 2A [Suspect]
     Active Substance: PEGINTERFERON ALFA-2A
     Route: 065
     Dates: end: 20140204

REACTIONS (5)
  - Pericardial effusion [Unknown]
  - Pleural effusion [Unknown]
  - Ascites [Unknown]
  - Haemoglobin decreased [Unknown]
  - Treatment failure [Unknown]

NARRATIVE: CASE EVENT DATE: 20130628
